FAERS Safety Report 5467601-3 (Version None)
Quarter: 2007Q3

REPORT INFORMATION
  Report Type: 
  Country: None (occurrence: None)
  Receive Date: 20070921
  Receipt Date: 20070911
  Transmission Date: 20080115
  Serious: Yes (Hospitalization)
  Sender: FDA-Public Use
  Company Number: 2007US001718

PATIENT
  Age: 88 Year
  Sex: Female
  Weight: 41.7 kg

DRUGS (16)
  1. VESICARE [Suspect]
     Indication: URGE INCONTINENCE
     Dosage: 5 MG, UID/QD, ORAL
     Route: 048
     Dates: start: 20070601, end: 20070601
  2. VESICARE [Suspect]
     Indication: URGE INCONTINENCE
     Dosage: 5 MG, UID/QD, ORAL
     Route: 048
     Dates: start: 20070710, end: 20070726
  3. ATENOLOL [Concomitant]
  4. ATACAND HCT (CANDESARTAN CILEXETIL) [Concomitant]
  5. LIPITOR [Concomitant]
  6. ARIMIDEX [Concomitant]
  7. XALATAN [Concomitant]
  8. ALPHAGAN P [Concomitant]
  9. AZOPT [Concomitant]
  10. CALCIUM (CALCIUM) [Concomitant]
  11. CARBIDOPA W/LEVODOPA (CARBIDOPA) [Concomitant]
  12. LUMIGAN (BIMATROPOST) [Concomitant]
  13. DIFLUNISAL [Concomitant]
  14. ACTONEL [Concomitant]
  15. ASPIRIN [Concomitant]
  16. BONIVA (IBANDRONATE SODIUM) [Concomitant]

REACTIONS (6)
  - ANAEMIA [None]
  - CHANGE OF BOWEL HABIT [None]
  - CONSTIPATION [None]
  - DIVERTICULITIS [None]
  - DRY MOUTH [None]
  - RENAL IMPAIRMENT [None]
